FAERS Safety Report 6550436-8 (Version None)
Quarter: 2010Q1

REPORT INFORMATION
  Report Type: 
  Country: None (occurrence: None)
  Receive Date: 20100125
  Receipt Date: 20100114
  Transmission Date: 20100710
  Serious: Yes (Other)
  Sender: FDA-Public Use
  Company Number: ES-PFIZER INC-2010005709

PATIENT
  Sex: Female
  Weight: 105 kg

DRUGS (3)
  1. ATORVASTATIN CALCIUM [Suspect]
     Indication: DYSLIPIDAEMIA
     Dosage: 40 MG, 1X/DAY
     Route: 048
  2. BISOPROLOL [Concomitant]
     Indication: HYPERTENSION
     Dosage: 10 MG, UNK
  3. FOSINOPRIL SODIUM AND HYDROCHLOROTHIAZIDE [Concomitant]
     Indication: HYPERTENSION
     Dosage: 20/12.5MG ONCE A DAY

REACTIONS (1)
  - ARTERIAL DISORDER [None]
